FAERS Safety Report 6580960-3 (Version None)
Quarter: 2010Q1

REPORT INFORMATION
  Report Type: 
  Country: None (occurrence: None)
  Receive Date: 20100215
  Receipt Date: 20100209
  Transmission Date: 20100710
  Serious: Yes (Other)
  Sender: FDA-Public Use
  Company Number: US-BAYER-201011480BCC

PATIENT
  Age: 55 Year
  Sex: Male
  Weight: 78 kg

DRUGS (3)
  1. ALEVE [Suspect]
     Indication: ARTHRITIS
     Route: 048
     Dates: start: 20100205
  2. TYLENOL-500 [Concomitant]
     Route: 065
  3. CORTISONE [Concomitant]
     Route: 065
     Dates: start: 20100118

REACTIONS (3)
  - ABDOMINAL PAIN UPPER [None]
  - DYSURIA [None]
  - GASTRIC HAEMORRHAGE [None]
